FAERS Safety Report 21046629 (Version 5)
Quarter: 2023Q2

REPORT INFORMATION
  Report Type: Spontaneous
  Country: GB (occurrence: GB)
  Receive Date: 20220706
  Receipt Date: 20230515
  Transmission Date: 20230721
  Serious: Yes (Other)
  Sender: FDA-Public Use
  Company Number: None

PATIENT
  Age: 15 Year
  Sex: Female

DRUGS (12)
  1. ARIPIPRAZOLE [Interacting]
     Active Substance: ARIPIPRAZOLE
     Indication: Bipolar disorder
     Route: 048
  2. CETIRIZINE HYDROCHLORIDE [Interacting]
     Active Substance: CETIRIZINE HYDROCHLORIDE
     Indication: Seasonal allergy
     Route: 048
  3. LAMOTRIGINE [Interacting]
     Active Substance: LAMOTRIGINE
     Indication: Bipolar disorder
     Dosage: 50 MG, TID
     Route: 048
  4. ABILIFY [Interacting]
     Active Substance: ARIPIPRAZOLE
     Indication: Bipolar disorder
     Dosage: DOSAGE FORM: UNSPECIFIED
     Route: 048
  5. ETONOGESTREL [Interacting]
     Active Substance: ETONOGESTREL
     Indication: Contraception
  6. NEXPLANON [Interacting]
     Active Substance: ETONOGESTREL
     Indication: Contraception
     Dosage: STRENGTH: 68 MG, PL 00065/0161 , ROUTE OF ADMINISTRATION: SUBDERMAL
     Route: 058
  7. LAMICTAL [Interacting]
     Active Substance: LAMOTRIGINE
     Indication: Bipolar disorder
     Dosage: 50 MG, TID/ 150 MILLIGRAM DAILY
     Route: 048
  8. LAMOTRIGINE [Interacting]
     Active Substance: LAMOTRIGINE
     Indication: Bipolar disorder
     Dosage: 50 MG, TID
     Route: 048
  9. LAMICTAL [Interacting]
     Active Substance: LAMOTRIGINE
     Indication: Bipolar disorder
     Dosage: 50 MILLIGRAM, 3 TIMES A DAY/ 150 MILLIGRAM DAILY
     Route: 048
  10. LAMICTAL [Interacting]
     Active Substance: LAMOTRIGINE
     Indication: Bipolar disorder
     Route: 048
  11. LAMOTRIGINE [Interacting]
     Active Substance: LAMOTRIGINE
     Indication: Product used for unknown indication
     Route: 048
  12. ETONOGESTREL [Interacting]
     Active Substance: ETONOGESTREL
     Indication: Contraception

REACTIONS (7)
  - Pregnancy on contraceptive [Unknown]
  - Drug interaction [Unknown]
  - Intermenstrual bleeding [Unknown]
  - Abortion spontaneous [Unknown]
  - Maternal exposure during pregnancy [Unknown]
  - Unintended pregnancy [Unknown]
  - Pregnancy with implant contraceptive [Unknown]
